FAERS Safety Report 8315228 (Version 2)
Quarter: 2012Q4

REPORT INFORMATION
  Report Type: 
  Country: GB (occurrence: GB)
  Receive Date: 20111229
  Receipt Date: 20121018
  Transmission Date: 20130627
  Serious: Yes (Hospitalization, Other)
  Sender: FDA-Public Use
  Company Number: PHFR2011GB007217

PATIENT
  Age: 66 Year
  Sex: Female

DRUGS (15)
  1. CLOZARIL [Suspect]
     Indication: SCHIZOAFFECTIVE DISORDER
     Dosage: 200 mg, UNK
     Route: 048
  2. CLOZARIL [Suspect]
     Dosage: 100 mg bd
     Route: 048
     Dates: start: 20110414
  3. DULOXETINE [Concomitant]
     Indication: DEPRESSION
     Dosage: 90 mg daily
     Route: 048
  4. DIAZEPAM [Concomitant]
     Indication: ANXIETY
     Dosage: 7.5 mg, UNK
     Route: 048
  5. SENNA [Concomitant]
     Indication: CONSTIPATION
     Dosage: 22.5 mg, UNK
     Route: 048
  6. SENNA [Concomitant]
     Dosage: 15 mg daily
     Route: 048
  7. LANSOPRAZOLE [Concomitant]
     Indication: DYSPEPSIA
     Dosage: 30 mg, UNK
  8. ATORVASTATIN [Concomitant]
     Indication: HYPERCHOLESTEROLAEMIA
     Dosage: 40 mg daily
     Route: 048
  9. ASPIRIN ^BAYER^ [Concomitant]
     Dosage: 75 mg, UNK
  10. PARACETAMOL [Concomitant]
     Dosage: 1 g, QDS
  11. BRUFEN ^ABBOTT^ [Concomitant]
  12. QUININE ^NM PHARMA^ [Concomitant]
     Dosage: 300 mg, UNK
  13. TRIHEXYPHENIDYL [Concomitant]
     Indication: EXTRAPYRAMIDAL DISORDER
     Dosage: 5 mg, UNK
  14. ZOLPIDEM [Concomitant]
     Indication: INSOMNIA
     Dosage: 5 mg daily
     Route: 048
  15. MST [Concomitant]
     Indication: PAIN

REACTIONS (9)
  - Duodenitis [Recovered/Resolved]
  - Vomiting [Recovered/Resolved]
  - Hypocalcaemia [Recovered/Resolved]
  - Hypomagnesaemia [Recovered/Resolved]
  - Dehydration [Recovered/Resolved]
  - Diarrhoea [Recovered/Resolved]
  - Blood parathyroid hormone increased [Unknown]
  - Vitamin D decreased [Unknown]
  - Constipation [Recovered/Resolved]
